FAERS Safety Report 10220627 (Version 1)
Quarter: 2014Q2

REPORT INFORMATION
  Report Type: Spontaneous
  Country: US (occurrence: None)
  Receive Date: 20140604
  Receipt Date: 20140604
  Transmission Date: 20141212
  Serious: Yes (Other)
  Sender: FDA-Public Use
  Company Number: 2515444201400005

PATIENT
  Sex: Male

DRUGS (2)
  1. HAWAIIAN TROPIC SHEER TOUCH SPF 30 [Suspect]
     Indication: SUNBURN
     Dosage: NO DOSAGE LIMITATIONS
     Dates: start: 20140410
  2. HAWAIIAN TROPIC SHEER TOUCH SPF 30 [Suspect]
     Indication: PROPHYLAXIS
     Dosage: NO DOSAGE LIMITATIONS
     Dates: start: 20140410

REACTIONS (4)
  - Chemical injury [None]
  - Application site rash [None]
  - Application site pruritus [None]
  - Application site erythema [None]
